FAERS Safety Report 7402443-0 (Version None)
Quarter: 2011Q2

REPORT INFORMATION
  Report Type: 
  Country: None (occurrence: None)
  Receive Date: 20110408
  Receipt Date: 20110325
  Transmission Date: 20111010
  Serious: Yes (Hospitalization)
  Sender: FDA-Public Use
  Company Number: DE-JNJFOC-20090903852

PATIENT
  Sex: Male
  Weight: 81 kg

DRUGS (5)
  1. REMICADE [Suspect]
     Indication: COLITIS ULCERATIVE
     Route: 042
     Dates: start: 20080108, end: 20080415
  2. VENLAFAXINE HCL [Concomitant]
     Indication: DEPRESSION
     Route: 048
  3. PANTOZOL [Concomitant]
     Indication: GASTROINTESTINAL DISORDER THERAPY
     Route: 048
  4. SIMVAHEXAL [Concomitant]
     Indication: BLOOD CHOLESTEROL
     Route: 048
  5. NOVALGIN [Concomitant]
     Indication: PAIN
     Route: 065

REACTIONS (2)
  - COLITIS ULCERATIVE [None]
  - ASCITES [None]
